FAERS Safety Report 7592693-5 (Version None)
Quarter: 2011Q3

REPORT INFORMATION
  Report Type: 
  Country: None (occurrence: None)
  Receive Date: 20110706
  Receipt Date: 20110630
  Transmission Date: 20111222
  Serious: No
  Sender: FDA-Public Use
  Company Number: US-PFIZER INC-2011147695

PATIENT
  Sex: Male

DRUGS (1)
  1. LYRICA [Suspect]
     Indication: NEUROPATHY PERIPHERAL
     Dosage: 150 MG IN THE MORNING AND 300 MG AT BED TIME
     Route: 048

REACTIONS (4)
  - PAIN IN EXTREMITY [None]
  - BLOOD PRESSURE DECREASED [None]
  - ASTHENIA [None]
  - DIZZINESS [None]
